FAERS Safety Report 23453002 (Version 3)
Quarter: 2024Q2

REPORT INFORMATION
  Report Type: Spontaneous
  Country: DE (occurrence: DE)
  Receive Date: 20240129
  Receipt Date: 20240429
  Transmission Date: 20240716
  Serious: Yes (Hospitalization)
  Sender: FDA-Public Use
  Company Number: DE-Harrow Eye-2152231

PATIENT
  Age: 51 Year
  Sex: Male

DRUGS (14)
  1. MAXITROL [Suspect]
     Active Substance: DEXAMETHASONE\NEOMYCIN SULFATE\POLYMYXIN B SULFATE
     Indication: Product used for unknown indication
  2. OCREVUS [Suspect]
     Active Substance: OCRELIZUMAB
     Route: 042
     Dates: start: 20190814
  3. LISINOPRIL [Concomitant]
     Active Substance: LISINOPRIL
  4. OMEPRAZOLE [Concomitant]
     Active Substance: OMEPRAZOLE
  5. BISOPROLOL. [Concomitant]
     Active Substance: BISOPROLOL FUMARATE
  6. AMLODIPINE [Concomitant]
     Active Substance: AMLODIPINE BESYLATE
  7. TAMSULOSIN [Concomitant]
     Active Substance: TAMSULOSIN
  8. DALFAMPRIDINE [Concomitant]
     Active Substance: DALFAMPRIDINE
  9. COMIRNATY NOS [Suspect]
     Active Substance: COVID-19 VACCINE
  10. OCREVUS [Suspect]
     Active Substance: OCRELIZUMAB
     Route: 042
  11. OCREVUS [Suspect]
     Active Substance: OCRELIZUMAB
     Route: 042
     Dates: start: 20210804
  12. OCREVUS [Suspect]
     Active Substance: OCRELIZUMAB
     Route: 042
     Dates: start: 20210204
  13. OCREVUS [Suspect]
     Active Substance: OCRELIZUMAB
     Route: 042
     Dates: start: 20200804
  14. OCREVUS [Suspect]
     Active Substance: OCRELIZUMAB
     Route: 042
     Dates: start: 20190828, end: 20200804

REACTIONS (19)
  - Multiple sclerosis relapse [Not Recovered/Not Resolved]
  - Pain [Not Recovered/Not Resolved]
  - COVID-19 [Recovered/Resolved]
  - Haematoma [Not Recovered/Not Resolved]
  - Headache [Recovered/Resolved]
  - Intraocular pressure increased [Recovered/Resolved]
  - Malaise [Not Recovered/Not Resolved]
  - Fatigue [Recovered/Resolved]
  - Asthenia [Not Recovered/Not Resolved]
  - Coordination abnormal [Not Recovered/Not Resolved]
  - Hordeolum [Recovered/Resolved]
  - Balance disorder [Not Recovered/Not Resolved]
  - Gastrointestinal disorder [Not Recovered/Not Resolved]
  - Apathy [Not Recovered/Not Resolved]
  - Gait disturbance [Not Recovered/Not Resolved]
  - Folliculitis [Recovering/Resolving]
  - Hypoaesthesia [Not Recovered/Not Resolved]
  - Fall [Unknown]
  - Femoral neck fracture [Not Recovered/Not Resolved]

NARRATIVE: CASE EVENT DATE: 20190814
